FAERS Safety Report 14907469 (Version 1)
Quarter: 2018Q2

REPORT INFORMATION
  Report Type: Spontaneous
  Country: CZ (occurrence: CZ)
  Receive Date: 20180517
  Receipt Date: 20180517
  Transmission Date: 20180711
  Serious: Yes (Other)
  Sender: FDA-Public Use
  Company Number: CZ-TEVA-2018-CZ-891826

PATIENT
  Age: 2 Year
  Sex: Female
  Weight: 14 kg

DRUGS (1)
  1. STOPTUSSIN (BUTAMIRATE CITRATE\GUAIFENESIN) [Suspect]
     Active Substance: BUTAMIRATE CITRATE\GUAIFENESIN
     Indication: COUGH
     Dosage: 2.5 ML DAILY;
     Route: 048
     Dates: start: 20180305, end: 20180307

REACTIONS (1)
  - Rash pruritic [Recovering/Resolving]

NARRATIVE: CASE EVENT DATE: 20180306
